FAERS Safety Report 16873164 (Version 1)
Quarter: 2019Q4

REPORT INFORMATION
  Report Type: Spontaneous
  Country: US (occurrence: US)
  Receive Date: 20191001
  Receipt Date: 20191001
  Transmission Date: 20200122
  Serious: Yes (Other)
  Sender: FDA-Public Use
  Company Number: US-IGSA-SR10009171

PATIENT
  Age: 54 Year
  Sex: Female
  Weight: 49 kg

DRUGS (2)
  1. GAMUNEX-C [Suspect]
     Active Substance: HUMAN IMMUNOGLOBULIN G
     Indication: GOOD SYNDROME
     Dosage: 300 ML, Q.3WK.
     Route: 042
     Dates: start: 201907
  2. GAMUNEX-C [Suspect]
     Active Substance: HUMAN IMMUNOGLOBULIN G
     Dosage: 250 ML, Q.4WK.
     Route: 042
     Dates: start: 201901

REACTIONS (6)
  - Red blood cell count decreased [Unknown]
  - Platelet count decreased [Unknown]
  - Eczema [Unknown]
  - Autoimmune haemolytic anaemia [Unknown]
  - Haemoglobin decreased [Unknown]
  - T-lymphocyte count decreased [Unknown]

NARRATIVE: CASE EVENT DATE: 201907
